FAERS Safety Report 24237796 (Version 3)
Quarter: 2024Q3

REPORT INFORMATION
  Report Type: Spontaneous
  Country: US (occurrence: US)
  Receive Date: 20240822
  Receipt Date: 20240927
  Transmission Date: 20241016
  Serious: No
  Sender: PFIZER
  Company Number: US-PFIZER INC-202400239163

PATIENT
  Age: 12 Year
  Sex: Male

DRUGS (1)
  1. GENOTROPIN [Suspect]
     Active Substance: SOMATROPIN
     Dosage: 2 MG
     Dates: start: 202408

REACTIONS (4)
  - Drug dose omission by device [Unknown]
  - Wrong technique in device usage process [Unknown]
  - Device delivery system issue [Unknown]
  - Product communication issue [Unknown]

NARRATIVE: CASE EVENT DATE: 20240818
